FAERS Safety Report 23513388 (Version 1)
Quarter: 2024Q1

REPORT INFORMATION
  Report Type: Spontaneous
  Country: US (occurrence: None)
  Receive Date: 20240210
  Receipt Date: 20240210
  Transmission Date: 20240409
  Serious: Yes (Death)
  Sender: FDA-Public Use
  Company Number: None

PATIENT
  Age: 75 Year
  Sex: Male

DRUGS (1)
  1. LENALIDOMIDE [Suspect]
     Active Substance: LENALIDOMIDE
     Indication: Lymphoma
     Dosage: 20MG QD ORAL?
     Route: 048
     Dates: start: 20231221, end: 20231227

REACTIONS (5)
  - Confusional state [None]
  - Asthenia [None]
  - Hypotension [None]
  - Tachypnoea [None]
  - Respiratory arrest [None]

NARRATIVE: CASE EVENT DATE: 20231227
